FAERS Safety Report 4502320-9 (Version None)
Quarter: 2004Q4

REPORT INFORMATION
  Report Type: 
  Country: None (occurrence: None)
  Receive Date: 20041116
  Receipt Date: 20041104
  Transmission Date: 20050328
  Serious: Yes (Death)
  Sender: FDA-Public Use
  Company Number: NZ-GLAXOSMITHKLINE-B0349450B

PATIENT
  Sex: Female

DRUGS (1)
  1. AROPAX [Suspect]
     Dosage: 20MG PER DAY
     Route: 048
     Dates: start: 20040401

REACTIONS (4)
  - CEREBRAL HAEMORRHAGE [None]
  - CYTOMEGALOVIRUS INFECTION [None]
  - FOETAL GROWTH RETARDATION [None]
  - PLACENTAL DISORDER [None]
